FAERS Safety Report 25464287 (Version 2)
Quarter: 2025Q4

REPORT INFORMATION
  Report Type: Spontaneous
  Country: US (occurrence: US)
  Receive Date: 20250621
  Receipt Date: 20251218
  Transmission Date: 20260118
  Serious: No
  Sender: TOLMAR
  Company Number: CID000000000000166

PATIENT

DRUGS (3)
  1. ELIGARD [Suspect]
     Active Substance: LEUPROLIDE ACETATE
     Indication: Neoplasm prostate
     Dosage: DOSE NOT ADMINISTERED?NDC:62935-227-10?EXP DATE: 08-2026; UNK; UNK?SN: 1138326795142?GTIN: 003629352
     Route: 058
  2. ELIGARD [Suspect]
     Active Substance: LEUPROLIDE ACETATE
     Dosage: REPLACEMENT DOSE
     Route: 058
  3. DEVICE [Suspect]
     Active Substance: DEVICE
     Indication: Neoplasm prostate

REACTIONS (3)
  - Intercepted product administration error [Unknown]
  - Product packaging quantity issue [Unknown]
  - Wrong technique in product usage process [Unknown]
